FAERS Safety Report 23946894 (Version 1)
Quarter: 2024Q2

REPORT INFORMATION
  Report Type: Spontaneous
  Country: DE (occurrence: DE)
  Receive Date: 20240606
  Receipt Date: 20240606
  Transmission Date: 20240716
  Serious: Yes (Congenital Anomaly, Other)
  Sender: FDA-Public Use
  Company Number: DE-EMBRYOTOX-202004447

PATIENT
  Age: 18 Month
  Sex: Female
  Weight: 2.1 kg

DRUGS (18)
  1. DULOXETINE HYDROCHLORIDE [Suspect]
     Active Substance: DULOXETINE HYDROCHLORIDE
     Indication: Borderline personality disorder
     Dosage: 90 MG/D / 60 MG/D INITIALLY
     Route: 064
     Dates: start: 20200129
  2. DULOXETINE HYDROCHLORIDE [Suspect]
     Active Substance: DULOXETINE HYDROCHLORIDE
     Indication: Borderline personality disorder
     Dosage: 90 MG/D / 60 MG/D INITIALLY
     Route: 064
     Dates: start: 20200129
  3. DULOXETINE HYDROCHLORIDE [Suspect]
     Active Substance: DULOXETINE HYDROCHLORIDE
     Dosage: 90 MG, DAILY FROM GW 14+1 ONWARDS
     Route: 064
     Dates: end: 20201016
  4. DULOXETINE HYDROCHLORIDE [Suspect]
     Active Substance: DULOXETINE HYDROCHLORIDE
     Dosage: 90 MG, DAILY FROM GW 14+1 ONWARDS
     Route: 064
     Dates: end: 20201016
  5. CYTOTEC [Concomitant]
     Active Substance: MISOPROSTOL
     Indication: Labour induction
     Dosage: UNK UNK, UNKNOWN
     Route: 064
     Dates: start: 20201016, end: 20201016
  6. CYTOTEC [Concomitant]
     Active Substance: MISOPROSTOL
     Indication: Labour induction
     Dosage: UNK UNK, UNKNOWN
     Route: 064
     Dates: start: 20201016, end: 20201016
  7. SEROQUEL [Concomitant]
     Active Substance: QUETIAPINE FUMARATE
     Indication: Depression
     Dosage: 25 MG/D ON DEMAND
     Route: 064
  8. SEROQUEL [Concomitant]
     Active Substance: QUETIAPINE FUMARATE
     Indication: Depression
     Dosage: 25 MG/D ON DEMAND
     Route: 064
  9. LORATADINE [Concomitant]
     Active Substance: LORATADINE
     Indication: Seasonal allergy
     Dosage: 10 MG/D ON DEMAND UNTIL APPROX. GW 27, 4-5 TABLETS IN TOTAL
     Route: 064
  10. LORATADINE [Concomitant]
     Active Substance: LORATADINE
     Indication: Seasonal allergy
     Dosage: 10 MG/D ON DEMAND UNTIL APPROX. GW 27, 4-5 TABLETS IN TOTAL
     Route: 064
  11. LORATADINE [Concomitant]
     Active Substance: LORATADINE
     Dosage: 10 MG/D AT LEAST UNT GW 27 ONWARDS
     Route: 064
  12. LORATADINE [Concomitant]
     Active Substance: LORATADINE
     Dosage: 10 MG/D AT LEAST UNT GW 27 ONWARDS
     Route: 064
  13. CALCIUM CARBONATE\SODIUM ALGINATE\SODIUM BICARBONATE [Concomitant]
     Active Substance: CALCIUM CARBONATE\SODIUM ALGINATE\SODIUM BICARBONATE
     Indication: Dyspepsia
     Dosage: UNK UNK, DAILY
     Route: 064
  14. CALCIUM CARBONATE\SODIUM ALGINATE\SODIUM BICARBONATE [Concomitant]
     Active Substance: CALCIUM CARBONATE\SODIUM ALGINATE\SODIUM BICARBONATE
     Indication: Dyspepsia
     Dosage: UNK UNK, DAILY
     Route: 064
  15. PROMETHAZINE [Concomitant]
     Active Substance: PROMETHAZINE HYDROCHLORIDE
     Indication: Borderline personality disorder
     Dosage: 10-25 MG/D ON DEMAND
     Route: 064
  16. PROMETHAZINE [Concomitant]
     Active Substance: PROMETHAZINE HYDROCHLORIDE
     Indication: Borderline personality disorder
     Dosage: 10-25 MG/D ON DEMAND
     Route: 064
  17. LIVOCAB DIREKT [Concomitant]
     Indication: Hypersensitivity
     Dosage: UNK UNK, ON DEMAND
     Route: 064
  18. LIVOCAB DIREKT [Concomitant]
     Indication: Hypersensitivity
     Dosage: UNK UNK, ON DEMAND
     Route: 064

REACTIONS (4)
  - Dandy-Walker syndrome [Not Recovered/Not Resolved]
  - Autism spectrum disorder [Not Recovered/Not Resolved]
  - Speech disorder developmental [Not Recovered/Not Resolved]
  - Foetal exposure during pregnancy [Unknown]
